FAERS Safety Report 6082587-9 (Version None)
Quarter: 2009Q1

REPORT INFORMATION
  Report Type: 
  Country: None (occurrence: None)
  Receive Date: 20090218
  Receipt Date: 20090205
  Transmission Date: 20090719
  Serious: Yes (Life-Threatening, Other)
  Sender: FDA-Public Use
  Company Number: TR-AVENTIS-200911360GDDC

PATIENT
  Age: 50 Year
  Sex: Male

DRUGS (2)
  1. KETEK [Suspect]
     Indication: RESPIRATORY TRACT INFECTION
     Dosage: DOSE: UNK
     Dates: start: 20090121, end: 20090122
  2. ANTIOBESITY PREPARATIONS, EXCL DIET PRODUCTS [Concomitant]

REACTIONS (5)
  - COXSACKIE VIRAL INFECTION [None]
  - HEPATOTOXICITY [None]
  - LOSS OF CONSCIOUSNESS [None]
  - MULTI-ORGAN FAILURE [None]
  - RENAL FAILURE [None]
